FAERS Safety Report 7525224-6 (Version None)
Quarter: 2011Q2

REPORT INFORMATION
  Report Type: 
  Country: None (occurrence: None)
  Receive Date: 20110606
  Receipt Date: 20110523
  Transmission Date: 20111010
  Serious: Yes (Hospitalization)
  Sender: FDA-Public Use
  Company Number: US-CELGENEUS-163-50794-11043236

PATIENT
  Sex: Female
  Weight: 65.4 kg

DRUGS (15)
  1. MIDOSTAURIN [Suspect]
     Dosage: 75 MILLIGRAM
     Route: 048
     Dates: start: 20110421, end: 20110421
  2. CELECOXIB [Concomitant]
     Dosage: 200 MILLIGRAM
     Route: 048
  3. FLUCONAZOLE [Concomitant]
     Dosage: 400 MILLIGRAM
     Route: 048
  4. PRILOSEC [Concomitant]
     Dosage: 40 MILLIGRAM
     Route: 048
  5. ALBUTEROL SULFATE AUTOHALER [Concomitant]
     Route: 065
  6. BROAD SPECTRUM ANTIBIOTICS [Concomitant]
     Route: 065
     Dates: start: 20110422
  7. ACYCLOVIR [Concomitant]
     Dosage: 400 MILLIGRAM
     Route: 065
  8. MULTI-VITAMINS [Concomitant]
     Dosage: 1
     Route: 048
  9. MEROPENEM [Concomitant]
     Indication: DIVERTICULITIS
     Route: 065
  10. VANCOMYCIN [Concomitant]
     Route: 065
  11. FLEXERIL [Concomitant]
     Indication: MUSCLE SPASMS
     Dosage: 10 MILLIGRAM
     Route: 065
  12. VIDAZA [Suspect]
     Dosage: 75 MILLIGRAM/SQ. METER
     Route: 051
     Dates: start: 20110414, end: 20110420
  13. NEUPOGEN [Concomitant]
     Route: 065
  14. COMPAZINE [Concomitant]
     Indication: NAUSEA
     Dosage: 10 MILLIGRAM
     Route: 065
  15. OXYCODONE HCL [Concomitant]
     Indication: PAIN
     Dosage: 5 MILLIGRAM
     Route: 048

REACTIONS (2)
  - ABSCESS [None]
  - LARGE INTESTINE PERFORATION [None]
